FAERS Safety Report 4818484-3 (Version None)
Quarter: 2005Q4

REPORT INFORMATION
  Report Type: 
  Country: None (occurrence: None)
  Receive Date: 20051101
  Receipt Date: 20051101
  Transmission Date: 20060501
  Serious: Yes (Hospitalization)
  Sender: FDA-Public Use
  Company Number: None

PATIENT
  Sex: Female
  Weight: 121 kg

DRUGS (17)
  1. RITUXAN [Suspect]
     Indication: MYASTHENIA GRAVIS
     Dosage: 375 MG/M2    1X WEEK FOR 4 WEEK   IV
     Route: 042
     Dates: start: 20040520, end: 20040611
  2. MESTINON [Concomitant]
  3. PREDNISONE [Concomitant]
  4. CELCEPT [Concomitant]
  5. AMBIEN [Concomitant]
  6. ADVAIR DISKUS 100/50 [Concomitant]
  7. ATIVANE [Concomitant]
  8. NEXIUM [Concomitant]
  9. VITAMIN D [Concomitant]
  10. ASPIRIN [Concomitant]
  11. MULTI-VITAMIN [Concomitant]
  12. TIMOPTIC [Concomitant]
  13. LEVSON [Concomitant]
  14. LEXAPRO [Concomitant]
  15. DILAUBID [Concomitant]
  16. TYLENOL (CAPLET) [Concomitant]
  17. MOUTRIN [Concomitant]

REACTIONS (3)
  - EXPOSURE TO COMMUNICABLE DISEASE [None]
  - LOBAR PNEUMONIA [None]
  - PERTUSSIS [None]
